FAERS Safety Report 8780398 (Version 1)
Quarter: 2012Q4

REPORT INFORMATION
  Report Type: Spontaneous
  Country: US (occurrence: None)
  Receive Date: 20120905
  Receipt Date: 20120905
  Transmission Date: 20130627
  Serious: Yes (Other)
  Sender: FDA-Public Use
  Company Number: None

PATIENT
  Age: 3 Year
  Sex: Female
  Weight: 61.24 kg

DRUGS (1)
  1. MIRENA [Suspect]
     Indication: DEPRESSION

REACTIONS (8)
  - Nausea [None]
  - Acne [None]
  - Hormone level abnormal [None]
  - Depression [None]
  - Asthenia [None]
  - Menorrhagia [None]
  - Headache [None]
  - Malaise [None]
